FAERS Safety Report 26074029 (Version 1)
Quarter: 2025Q4

REPORT INFORMATION
  Report Type: Report from Study
  Country: US (occurrence: US)
  Receive Date: 20251121
  Receipt Date: 20251121
  Transmission Date: 20260118
  Serious: Yes (Hospitalization, Other)
  Sender: TEVA
  Company Number: US-TEVA-VS-3393193

PATIENT
  Age: 74 Year
  Sex: Male
  Weight: 86.4 kg

DRUGS (25)
  1. FLUOROURACIL [Suspect]
     Active Substance: FLUOROURACIL
     Indication: Adenocarcinoma gastric
     Route: 042
     Dates: start: 20250318
  2. ASPIRIN [Concomitant]
     Active Substance: ASPIRIN
     Indication: Cancer pain
     Route: 065
     Dates: start: 20250304
  3. ALPHAGAN P [Concomitant]
     Active Substance: BRIMONIDINE TARTRATE
     Indication: Glaucoma
     Route: 065
     Dates: start: 20250228
  4. DECADRON [Concomitant]
     Active Substance: DEXAMETHASONE
     Indication: Chemotherapy side effect prophylaxis
     Dosage: 2/DAYS
     Route: 065
     Dates: start: 20250318
  5. DECADRON [Concomitant]
     Active Substance: DEXAMETHASONE
     Indication: Chemotherapy side effect prophylaxis
     Dosage: TIME INTERVAL: AS NECESSARY
     Route: 065
     Dates: start: 20250318
  6. TYLENOL [Concomitant]
     Active Substance: ACETAMINOPHEN
     Indication: Abdominal pain upper
     Dosage: TIME INTERVAL: AS NECESSARY
     Route: 065
     Dates: start: 20250318
  7. ZYPREXA [Concomitant]
     Active Substance: OLANZAPINE
     Indication: Decreased appetite
     Route: 065
     Dates: start: 20250401
  8. CINVANTI [Concomitant]
     Active Substance: APREPITANT
     Indication: Prophylaxis
     Dosage: TIME INTERVAL: AS NECESSARY
     Route: 065
     Dates: start: 20250318
  9. LEXAPRO [Concomitant]
     Active Substance: ESCITALOPRAM OXALATE
     Indication: Anxiety
     Route: 065
     Dates: start: 20250304
  10. PEPCID [Concomitant]
     Active Substance: FAMOTIDINE
     Indication: Abdominal pain upper
     Dosage: 2/DAYS
     Route: 065
     Dates: start: 20250305
  11. PRILOSEC [Concomitant]
     Active Substance: OMEPRAZOLE MAGNESIUM
     Indication: Abdominal pain upper
     Route: 065
     Dates: start: 20250304
  12. CRESTOR [Concomitant]
     Active Substance: ROSUVASTATIN CALCIUM
     Indication: Blood cholesterol abnormal
     Route: 065
     Dates: start: 20250225
  13. CARAFATE [Concomitant]
     Active Substance: SUCRALFATE
     Indication: Abdominal pain upper
     Dosage: 1 GRAIN EVERY 6 HOURS
     Route: 065
  14. FLOMAX [Concomitant]
     Active Substance: TAMSULOSIN HYDROCHLORIDE
     Indication: Prostatomegaly
     Route: 065
     Dates: start: 20250225
  15. DIOVAN [Concomitant]
     Active Substance: VALSARTAN
     Indication: Hypertension
     Route: 065
     Dates: start: 20250304
  16. FORTAMET [Concomitant]
     Active Substance: METFORMIN HYDROCHLORIDE
     Indication: Type 2 diabetes mellitus
     Dosage: 4/DAYS
     Route: 065
     Dates: start: 20250304
  17. XALATAN [Concomitant]
     Active Substance: LATANOPROST
     Indication: Glaucoma
     Route: 065
     Dates: start: 20250126
  18. NORVASC [Concomitant]
     Active Substance: AMLODIPINE BESYLATE
     Indication: Hypertension
     Route: 065
     Dates: start: 20250304
  19. LEUCOVORIN [Suspect]
     Active Substance: LEUCOVORIN\LEUCOVORIN CALCIUM
     Indication: Adenocarcinoma gastric
     Route: 042
     Dates: start: 20250318
  20. BUDIGALIMAB [Suspect]
     Active Substance: BUDIGALIMAB
     Indication: Adenocarcinoma gastric
     Route: 042
     Dates: start: 20250318
  21. ULTRAM [Concomitant]
     Active Substance: TRAMADOL HYDROCHLORIDE
     Indication: Pain
     Route: 065
     Dates: start: 20250607
  22. ZOFRAN [Concomitant]
     Active Substance: ONDANSETRON HYDROCHLORIDE
     Indication: Nausea
     Dosage: TIME INTERVAL: AS NECESSARY
     Route: 065
     Dates: start: 20250318
  23. ZOFRAN [Concomitant]
     Active Substance: ONDANSETRON HYDROCHLORIDE
     Indication: Nausea
     Dosage: TIME INTERVAL: AS NECESSARY: 3/DAYS
     Route: 065
     Dates: start: 20250318
  24. PROSCAR [Concomitant]
     Active Substance: FINASTERIDE
     Indication: Prostatomegaly
     Route: 065
     Dates: start: 20250304
  25. TRUSOPT [Concomitant]
     Active Substance: DORZOLAMIDE HYDROCHLORIDE
     Indication: Glaucoma
     Dosage: 3/DAYS
     Dates: start: 20250213

REACTIONS (3)
  - Rectal haemorrhage [Not Recovered/Not Resolved]
  - Haemorrhoids [Unknown]
  - Diarrhoea [Unknown]

NARRATIVE: CASE EVENT DATE: 20250401
